FAERS Safety Report 25186154 (Version 3)
Quarter: 2025Q3

REPORT INFORMATION
  Report Type: Report from Study
  Country: US (occurrence: US)
  Receive Date: 20250410
  Receipt Date: 20250806
  Transmission Date: 20251020
  Serious: Yes (Other)
  Sender: ABBVIE
  Company Number: US-ABBVIE-6113991

PATIENT
  Sex: Female

DRUGS (1)
  1. HUMIRA [Suspect]
     Active Substance: ADALIMUMAB
     Indication: Product used for unknown indication
     Route: 058
     Dates: start: 20241019

REACTIONS (9)
  - Muscle rupture [Recovering/Resolving]
  - Pre-existing condition improved [Unknown]
  - Bronchitis [Not Recovered/Not Resolved]
  - Sinusitis [Recovering/Resolving]
  - Pneumonitis [Unknown]
  - Cellulitis [Recovering/Resolving]
  - Uveitis [Recovering/Resolving]
  - Illness [Recovered/Resolved]
  - Therapeutic response unexpected [Unknown]
